FAERS Safety Report 7339195-9 (Version None)
Quarter: 2011Q1

REPORT INFORMATION
  Report Type: 
  Country: None (occurrence: None)
  Receive Date: 20110228
  Receipt Date: 20110212
  Transmission Date: 20110831
  Serious: Yes (Hospitalization, Other)
  Sender: FDA-Public Use
  Company Number: TRP_07581_2011

PATIENT
  Sex: Male
  Weight: 118 kg

DRUGS (10)
  1. CLONIDINE [Concomitant]
  2. LABETALOL [Concomitant]
  3. LEVAMIR [Concomitant]
  4. NAPROXEN [Concomitant]
  5. NORVASC [Concomitant]
  6. RIBAVIRIN [Suspect]
     Indication: HEPATITIS C
     Dosage: 600 MG BID ORAL
     Route: 048
     Dates: start: 20101116, end: 20110207
  7. PROCRIT /00909301/ [Concomitant]
  8. INFERGEN [Suspect]
     Indication: HEPATITIS C
     Dosage: 15 UG QD SUBCUTANEOUS
     Route: 058
     Dates: start: 20101116, end: 20110212
  9. GABAPENTIN [Concomitant]
  10. NOVOLOG [Concomitant]

REACTIONS (11)
  - BLOOD PRESSURE INCREASED [None]
  - WHITE BLOOD CELL COUNT DECREASED [None]
  - ASPARTATE AMINOTRANSFERASE INCREASED [None]
  - PNEUMONIA [None]
  - HAEMATEMESIS [None]
  - MELAENA [None]
  - HAEMATOCRIT DECREASED [None]
  - ALANINE AMINOTRANSFERASE INCREASED [None]
  - BLOOD POTASSIUM DECREASED [None]
  - HAEMOGLOBIN DECREASED [None]
  - BLOOD GLUCOSE INCREASED [None]
